FAERS Safety Report 10008004 (Version 5)
Quarter: 2015Q1

REPORT INFORMATION
  Report Type: Report from Study
  Country: TR (occurrence: TR)
  Receive Date: 20140313
  Receipt Date: 20150128
  Transmission Date: 20150720
  Serious: Yes (Death, Other)
  Sender: FDA-Public Use
  Company Number: TR-BAYER-2014-036143

PATIENT
  Age: 39 Year
  Sex: Male
  Weight: 55 kg

DRUGS (2)
  1. REGORAFENIB [Suspect]
     Active Substance: REGORAFENIB
     Indication: COLORECTAL CANCER METASTATIC
     Dosage: 160 MG, (40 MG X 4)
     Route: 048
     Dates: start: 20140106, end: 20140127
  2. REGORAFENIB [Suspect]
     Active Substance: REGORAFENIB
     Indication: COLORECTAL CANCER METASTATIC
     Dosage: 160 MG, (40 MG X 4)
     Route: 048
     Dates: start: 20140209, end: 20140225

REACTIONS (1)
  - Malaise [Fatal]

NARRATIVE: CASE EVENT DATE: 20140303
